FAERS Safety Report 14405698 (Version 1)
Quarter: 2018Q1

REPORT INFORMATION
  Report Type: Spontaneous
  Country: US (occurrence: US)
  Receive Date: 20180118
  Receipt Date: 20180118
  Transmission Date: 20180509
  Serious: Yes (Hospitalization)
  Sender: FDA-Public Use
  Company Number: US-B.I. PHARMACEUTICALS,INC./RIDGEFIELD-2018-BI-002701

PATIENT
  Age: 73 Year
  Sex: Male

DRUGS (3)
  1. SPIRIVA [Suspect]
     Active Substance: TIOTROPIUM BROMIDE MONOHYDRATE
     Indication: CHRONIC OBSTRUCTIVE PULMONARY DISEASE
     Route: 048
  2. LEVOTHYROXIN [Concomitant]
     Active Substance: LEVOTHYROXINE
     Indication: BLOOD THYROID STIMULATING HORMONE INCREASED
     Dosage: FORM STRENGTH: 75MCG; FORMULATION: TABLET
     Route: 048
     Dates: start: 2016
  3. PLAVIX [Concomitant]
     Active Substance: CLOPIDOGREL BISULFATE
     Indication: BLOOD CHOLESTEROL INCREASED
     Dosage: FORM STRENGTH: 75MG; FORMULATION: TABLET
     Route: 048
     Dates: start: 201301

REACTIONS (8)
  - Arthropod bite [Recovered/Resolved]
  - Brain stem stroke [Recovered/Resolved with Sequelae]
  - Blood cholesterol decreased [Not Recovered/Not Resolved]
  - Brain stem stroke [Recovered/Resolved]
  - Food allergy [Not Recovered/Not Resolved]
  - Milk allergy [Not Recovered/Not Resolved]
  - Dermatitis [Not Recovered/Not Resolved]
  - Depression [Not Recovered/Not Resolved]

NARRATIVE: CASE EVENT DATE: 201301
